FAERS Safety Report 20529348 (Version 3)
Quarter: 2022Q1

REPORT INFORMATION
  Report Type: Report from Study
  Country: TR (occurrence: TR)
  Receive Date: 20220228
  Receipt Date: 20220322
  Transmission Date: 20220423
  Serious: Yes (Hospitalization, Other)
  Sender: FDA-Public Use
  Company Number: TR-SEATTLE GENETICS-2020SGN04621

PATIENT
  Age: 60 Year
  Sex: Female
  Weight: 56 kg

DRUGS (62)
  1. TISOTUMAB VEDOTIN [Suspect]
     Active Substance: TISOTUMAB VEDOTIN
     Indication: Cervix cancer metastatic
     Dosage: 2 MILLIGRAM/KILOGRAM, 1Q3W
     Route: 042
     Dates: start: 20201006
  2. CARBOPLATIN [Suspect]
     Active Substance: CARBOPLATIN
     Indication: Cervix cancer metastatic
     Dosage: 1 DOSAGE FORM (5 AUC), 1Q3W
     Route: 042
     Dates: start: 20201006, end: 20201006
  3. CARBOPLATIN [Suspect]
     Active Substance: CARBOPLATIN
     Dosage: 1 DOSAGE FORM (4 AUC), 1Q3W
     Route: 042
     Dates: start: 20201103
  4. METOCLOPRAMIDE [Concomitant]
     Active Substance: METOCLOPRAMIDE
     Indication: Prophylaxis
     Dosage: 10 MILLIGRAM, BID
     Route: 048
     Dates: start: 20200929, end: 20201013
  5. METOCLOPRAMIDE [Concomitant]
     Active Substance: METOCLOPRAMIDE
     Dosage: 10 MILLIGRAM, QD
     Route: 048
     Dates: start: 20201027, end: 20210120
  6. PIROXICAM [Concomitant]
     Active Substance: PIROXICAM
     Indication: Prophylaxis
     Dosage: 20 MILLIGRAM, QD
     Route: 048
     Dates: start: 20201001, end: 20201013
  7. BUTYLSCOPOLAMINE BROMIDE [Concomitant]
     Active Substance: BUTYLSCOPOLAMINE BROMIDE
     Indication: Pain
     Dosage: 10 MILLIGRAM, QD
     Route: 048
     Dates: start: 20200929, end: 20201013
  8. BUTYLSCOPOLAMINE BROMIDE [Concomitant]
     Active Substance: BUTYLSCOPOLAMINE BROMIDE
     Indication: Prophylaxis
     Dosage: 20 MILLIGRAM, QD
     Route: 042
     Dates: start: 20210104, end: 20210104
  9. ACETAMINOPHEN [Concomitant]
     Active Substance: ACETAMINOPHEN
     Indication: Prophylaxis
     Dosage: 500 MILLIGRAM, QD
     Route: 048
     Dates: start: 20200826, end: 20201012
  10. EFEMOLINE [Concomitant]
     Indication: Xerophthalmia
     Dosage: UNK
     Dates: start: 20201006, end: 20201008
  11. REFRESH [CARMELLOSE SODIUM] [Concomitant]
     Indication: Xerophthalmia
     Dosage: UNK
     Dates: start: 20201006
  12. FENTANYL [Concomitant]
     Active Substance: FENTANYL
     Indication: Prophylaxis
     Dosage: 125 MILLIGRAM, QD
     Route: 048
     Dates: start: 20200826, end: 20201012
  13. SYSTANE (HYPROMELLOSE 2910 (4000 MPA.S)) [Concomitant]
     Active Substance: HYPROMELLOSE 2910 (4000 MPA.S)
     Indication: Xerophthalmia
     Dosage: 1 DROP, QD, BOTH EYES
     Route: 047
     Dates: start: 20200829, end: 20201013
  14. PROGAS [Concomitant]
     Indication: Prophylaxis
     Dosage: 40 MILLIGRAM, QD
     Route: 042
     Dates: start: 20201008, end: 20201010
  15. PROGAS [Concomitant]
     Dosage: 40 MILLIGRAM, QD
     Route: 042
     Dates: start: 20201012, end: 20201014
  16. PROGAS [Concomitant]
     Dosage: 40 MILLIGRAM, QD
     Route: 042
     Dates: start: 20201015, end: 20201026
  17. PROGAS [Concomitant]
     Dosage: 40 MILLIGRAM, QD
     Route: 042
     Dates: start: 20201117, end: 20201120
  18. OKSAPAR [Concomitant]
     Indication: Prophylaxis
     Dosage: 60 MILLIGRAM, BID
     Route: 058
     Dates: start: 20201008, end: 20201010
  19. OKSAPAR [Concomitant]
     Dosage: 60 MILLIGRAM, BID
     Route: 058
     Dates: start: 20201012, end: 20201016
  20. OKSAPAR [Concomitant]
     Dosage: 0.4 MILLILITER, QD
     Route: 058
     Dates: start: 20201027, end: 20210209
  21. PAROL [Concomitant]
     Active Substance: ACETAMINOPHEN
     Indication: Prophylaxis
     Dosage: 1000 MILLIGRAM PER MILLILITRE, TID
     Route: 042
     Dates: start: 20201013, end: 20201014
  22. PAROL [Concomitant]
     Active Substance: ACETAMINOPHEN
     Dosage: 1000 MILLIGRAM PER MILLILITRE, TID
     Route: 042
     Dates: start: 20201020, end: 20201020
  23. PAROL [Concomitant]
     Active Substance: ACETAMINOPHEN
     Dosage: 1000 MILLIGRAM PER MILLILITRE, TID
     Route: 042
     Dates: start: 20201022, end: 20201023
  24. PAROL [Concomitant]
     Active Substance: ACETAMINOPHEN
     Dosage: 1000 MILLIGRAM, TID
     Route: 042
     Dates: start: 20201117, end: 20201117
  25. NEUPOGEN [Concomitant]
     Active Substance: FILGRASTIM
     Indication: Prophylaxis
     Dosage: 300 MICROGRAM, QD
     Route: 058
     Dates: start: 20201014, end: 20201021
  26. NEUPOGEN [Concomitant]
     Active Substance: FILGRASTIM
     Dosage: 300 MICROGRAM, QD
     Route: 058
     Dates: start: 20201120, end: 20201120
  27. PIPERACILLIN SODIUM\TAZOBACTAM SODIUM [Concomitant]
     Active Substance: PIPERACILLIN SODIUM\TAZOBACTAM SODIUM
     Indication: Urinary tract infection
     Dosage: 4.5 MILLIGRAM, TID
     Route: 042
     Dates: start: 20201013, end: 20201015
  28. OLICLINOMEL [AMINO ACIDS NOS;CARBOHYDRATES NOS;ELECTROLYTES NOS;LIPIDS [Concomitant]
     Indication: Prophylaxis
     Dosage: 1500 MILLILITER, QD
     Route: 042
     Dates: start: 20201015, end: 20201016
  29. DUPHALAC [Concomitant]
     Active Substance: LACTULOSE
     Indication: Prophylaxis
     Dosage: 670 MILLIGRAM PER MILLILITRE, TID
     Route: 048
     Dates: start: 20201020, end: 20201026
  30. ENEMA [SODIUM CHLORIDE] [Concomitant]
     Indication: Prophylaxis
     Dosage: 135 MILLILITER, QD
     Route: 054
     Dates: start: 20201023, end: 20201023
  31. ENOXAPARIN SODIUM [Concomitant]
     Active Substance: ENOXAPARIN SODIUM
     Indication: Prophylaxis
     Dosage: 60 MILLIGRAM, QD
     Route: 042
     Dates: start: 20201118, end: 20201120
  32. MORPHINE [Concomitant]
     Active Substance: MORPHINE
     Indication: Prophylaxis
     Dosage: 5 MILLIGRAM, TID
     Route: 058
     Dates: start: 20201009, end: 20201009
  33. MORPHINE [Concomitant]
     Active Substance: MORPHINE
     Dosage: 5 MILLIGRAM, QID
     Route: 058
     Dates: start: 20201012, end: 20201014
  34. FENTANYL [Concomitant]
     Active Substance: FENTANYL
     Indication: Prophylaxis
     Dosage: 50 MICROGRAM, QD
     Route: 062
     Dates: start: 20201117, end: 20201118
  35. URODERM [Concomitant]
     Indication: Prophylaxis
     Dosage: 10 PERCENT, TID
     Route: 061
     Dates: start: 20201119, end: 20201119
  36. PANTOPRAZOLE SODIUM [Concomitant]
     Active Substance: PANTOPRAZOLE SODIUM
     Indication: Prophylaxis
     Dosage: 40 MILLIGRAM, QD
     Route: 042
     Dates: start: 20210104, end: 20210104
  37. PANTOPRAZOLE SODIUM [Concomitant]
     Active Substance: PANTOPRAZOLE SODIUM
     Dosage: 40 MILLIGRAM, 5 TIMES DAILY
     Route: 042
     Dates: start: 20210106, end: 20210107
  38. METOCLOPRAMIDE HYDROCHLORIDE [Concomitant]
     Active Substance: METOCLOPRAMIDE HYDROCHLORIDE
     Indication: Prophylaxis
     Dosage: 10 MILLIGRAM, QD
     Route: 042
     Dates: start: 20210104, end: 20210104
  39. METRONIDAZOLE [Concomitant]
     Active Substance: METRONIDAZOLE
     Indication: Prophylaxis
     Dosage: 500 MILLIGRAM, QD
     Route: 042
     Dates: start: 20210104, end: 20210104
  40. MAGNESIUM SULFATE [Concomitant]
     Active Substance: MAGNESIUM SULFATE
     Indication: Prophylaxis
     Dosage: 1.5 GRAM, BID
     Dates: start: 20210104, end: 20210104
  41. ISOTONIC [Concomitant]
     Indication: Rectal haemorrhage
     Dosage: 100 MILLILITER, QD
     Route: 042
     Dates: start: 20210104, end: 20210104
  42. ISOTONIC [Concomitant]
     Indication: Prophylaxis
     Dosage: 100 MILLILITER, QID
     Route: 042
     Dates: start: 20210105, end: 20210105
  43. ISOTONIC [Concomitant]
     Dosage: 1000 MILLILITER, BID
     Route: 042
     Dates: start: 20210105, end: 20210106
  44. ISOTONIC [Concomitant]
     Dosage: 100 MILLILITER, FIVE TIMES DAILY
     Route: 042
     Dates: start: 20210106, end: 20210106
  45. ISOTONIC [Concomitant]
     Dosage: 1000 MILLILITER, BID
     Route: 042
     Dates: start: 20210106, end: 20210106
  46. ISOTONIC [Concomitant]
     Dosage: 100 MILLILITER, QD
     Route: 042
     Dates: start: 20210107, end: 20210107
  47. NOVOSEF [Concomitant]
     Indication: Prophylaxis
     Dosage: 1 GRAM, BID
     Route: 042
     Dates: start: 20210105, end: 20210108
  48. NOVOSEF [Concomitant]
     Dosage: 1 GRAM, BID
     Route: 042
     Dates: start: 20210108, end: 20210108
  49. DRAMAMINE [Concomitant]
     Active Substance: DIMENHYDRINATE
     Indication: Prophylaxis
     Dosage: 50 MILLIGRAM, QD
     Route: 042
     Dates: start: 20210105, end: 20210106
  50. DRAMAMINE [Concomitant]
     Active Substance: DIMENHYDRINATE
     Dosage: 50 MILLIGRAM, BID
     Route: 042
     Dates: start: 20210107, end: 20210108
  51. DOLADAMON [CODEINE PHOSPHATE;PARACETAMOL] [Concomitant]
     Indication: Prophylaxis
     Dosage: 300 MILLIGRAM, QD
     Route: 048
     Dates: start: 20201027, end: 20210209
  52. SERUM DEXTROSE [Concomitant]
     Indication: Prophylaxis
     Dosage: 1000 MILLILITER, QD
     Route: 042
     Dates: start: 20210105, end: 20210105
  53. SERUM DEXTROSE [Concomitant]
     Dosage: 1000 MILLILITER, BID
     Route: 042
     Dates: start: 20210106, end: 20210106
  54. SERUM DEXTROSE [Concomitant]
     Dosage: 1000 MILLILITER, QD
     Route: 042
     Dates: start: 20210107, end: 20210107
  55. COSMETICS [Concomitant]
     Active Substance: COSMETICS
     Indication: Prophylaxis
     Dosage: 200 MILLILITER, QD
     Route: 061
     Dates: start: 20210106, end: 20210306
  56. EXCIPIAL HYDRO [Concomitant]
     Indication: Prophylaxis
     Dosage: 200 MILLILITER, QD
     Route: 061
     Dates: start: 20210107, end: 20210107
  57. PROTONEX [Concomitant]
     Indication: Rectal haemorrhage
     Dosage: 40 MILLIGRAM, BID
     Route: 042
     Dates: start: 20210109, end: 20210109
  58. PARTEMOL [Concomitant]
     Indication: Prophylaxis
     Dosage: 10 MILLIGRAM, QD
     Route: 042
     Dates: start: 20210110, end: 20210110
  59. PLATELETS [Concomitant]
     Active Substance: HUMAN PLATELET, ALLOGENIC
     Indication: Anaemia
     Dosage: 1 UNIT, QD
     Route: 042
     Dates: start: 20201021, end: 20201021
  60. PLATELETS [Concomitant]
     Active Substance: HUMAN PLATELET, ALLOGENIC
     Dosage: 1 UNIT, QD
     Route: 042
     Dates: start: 20201022, end: 20201022
  61. HUMAN RED BLOOD CELL [Concomitant]
     Active Substance: HUMAN RED BLOOD CELL
     Indication: Rectal haemorrhage
     Dosage: 1 UNIT, QD
     Route: 042
     Dates: start: 20210105, end: 20210105
  62. HUMAN RED BLOOD CELL [Concomitant]
     Active Substance: HUMAN RED BLOOD CELL
     Dosage: 2 UNITS, QD
     Route: 042
     Dates: start: 20210106, end: 20210106

REACTIONS (5)
  - Myalgia [Recovered/Resolved]
  - Urinary tract infection [Recovered/Resolved]
  - Anaemia [Recovered/Resolved]
  - Febrile neutropenia [Recovered/Resolved]
  - Nausea [Recovered/Resolved]

NARRATIVE: CASE EVENT DATE: 20201008
